FAERS Safety Report 7018787-0 (Version None)
Quarter: 2010Q3

REPORT INFORMATION
  Report Type: 
  Country: None (occurrence: None)
  Receive Date: 20100928
  Receipt Date: 20100915
  Transmission Date: 20110219
  Serious: Yes (Other)
  Sender: FDA-Public Use
  Company Number: PHHY2010JP63692

PATIENT
  Age: 28 Year
  Sex: Female

DRUGS (1)
  1. AFINITOR [Suspect]
     Indication: ALVEOLAR SOFT PART SARCOMA
     Dosage: 10 MG, DAILY
     Route: 048
     Dates: start: 20100615, end: 20100712

REACTIONS (2)
  - EOSINOPHIL COUNT INCREASED [None]
  - MALIGNANT NEOPLASM PROGRESSION [None]
